FAERS Safety Report 5092115-2 (Version None)
Quarter: 2006Q3

REPORT INFORMATION
  Report Type: 
  Country: None (occurrence: None)
  Receive Date: 20060828
  Receipt Date: 20060828
  Transmission Date: 20061208
  Serious: Yes (Other)
  Sender: FDA-Public Use
  Company Number: None

PATIENT
  Age: 37 Year
  Sex: Female

DRUGS (4)
  1. TOPAMAX [Suspect]
     Indication: MIGRAINE
     Dosage: SEE IMAGE
     Dates: start: 20050801, end: 20060601
  2. INDERAL LA [Concomitant]
  3. MAXALT-MLT [Concomitant]
  4. RELPAX [Concomitant]

REACTIONS (11)
  - CONDITION AGGRAVATED [None]
  - CONFUSIONAL STATE [None]
  - FEELING COLD [None]
  - HEADACHE [None]
  - HYPOAESTHESIA [None]
  - ILL-DEFINED DISORDER [None]
  - MIGRAINE [None]
  - PARAESTHESIA [None]
  - SENSORY LOSS [None]
  - VISUAL ACUITY REDUCED [None]
  - VOMITING [None]
